FAERS Safety Report 6389437-1 (Version None)
Quarter: 2009Q4

REPORT INFORMATION
  Report Type: 
  Country: None (occurrence: None)
  Receive Date: 20091006
  Receipt Date: 20090930
  Transmission Date: 20100525
  Serious: Yes (Other)
  Sender: FDA-Public Use
  Company Number: US-JNJFOC-20091000729

PATIENT
  Age: 65 Year
  Sex: Female

DRUGS (7)
  1. LEVAQUIN [Suspect]
     Indication: GASTRIC INFECTION
     Route: 048
     Dates: start: 20090929
  2. LANTUS [Concomitant]
     Indication: DIABETES MELLITUS
     Route: 065
  3. METFORMIN [Concomitant]
     Indication: DIABETES MELLITUS
     Route: 065
  4. CHOLESTEROL LOWERING DRUG [Concomitant]
     Indication: BLOOD CHOLESTEROL INCREASED
     Route: 065
  5. LISINOPRIL [Concomitant]
     Route: 065
  6. ASPIRIN [Concomitant]
     Indication: CARDIAC DISORDER
     Route: 065
  7. METOPROLOL [Concomitant]
     Route: 065

REACTIONS (2)
  - BLOOD GLUCOSE INCREASED [None]
  - TREMOR [None]
